FAERS Safety Report 4761129-1 (Version None)
Quarter: 2005Q3

REPORT INFORMATION
  Report Type: 
  Country: None (occurrence: None)
  Receive Date: 20050902
  Receipt Date: 20050902
  Transmission Date: 20060218
  Serious: Yes (Life-Threatening, Hospitalization, Disabling)
  Sender: FDA-Public Use
  Company Number: None

PATIENT
  Age: 81 Year
  Sex: Female
  Weight: 62 kg

DRUGS (11)
  1. ALTEPLASE    100 MG    GENENTEC [Suspect]
     Indication: CEREBROVASCULAR ACCIDENT
     Dosage: 0.9 MG/KG   ONCE   IV
     Route: 042
     Dates: start: 20050821, end: 20050821
  2. COZAAR [Concomitant]
  3. TOPROL-XL [Concomitant]
  4. LASIX [Concomitant]
  5. ZOLOFT [Concomitant]
  6. LIPITOR [Concomitant]
  7. EVISTA [Concomitant]
  8. LUTEIN [Concomitant]
  9. OCUVITE [Concomitant]
  10. BENZONOATE [Concomitant]
  11. ASPIRIN [Concomitant]

REACTIONS (1)
  - CEREBRAL HAEMORRHAGE [None]
